FAERS Safety Report 9626777 (Version 1)
Quarter: 2013Q4

REPORT INFORMATION
  Report Type: Spontaneous
  Country: BR (occurrence: BR)
  Receive Date: 20131016
  Receipt Date: 20131016
  Transmission Date: 20140711
  Serious: Yes (Other)
  Sender: FDA-Public Use
  Company Number: BR-GLAXOSMITHKLINE-B0922657A

PATIENT
  Age: 50 Year
  Sex: Female

DRUGS (3)
  1. ZOVIRAX [Suspect]
     Indication: HERPES OPHTHALMIC
     Dosage: 200MG UNKNOWN
     Route: 048
  2. VALTREX [Suspect]
     Indication: HERPES OPHTHALMIC
     Dosage: 500MG TWICE PER DAY
     Route: 048
  3. PREDNISONE [Suspect]
     Indication: SYSTEMIC LUPUS ERYTHEMATOSUS
     Dosage: 40MG PER DAY
     Route: 048

REACTIONS (9)
  - Retinal detachment [Unknown]
  - Drug ineffective [Recovered/Resolved]
  - Abdominal pain upper [Recovered/Resolved]
  - Nausea [Recovered/Resolved]
  - Dizziness [Recovered/Resolved]
  - Prescribed overdose [Recovered/Resolved]
  - Condition aggravated [Not Recovered/Not Resolved]
  - Retinal operation [Unknown]
  - Herpes ophthalmic [Unknown]
